FAERS Safety Report 4276089-X (Version None)
Quarter: 2004Q1

REPORT INFORMATION
  Report Type: 
  Country: None (occurrence: None)
  Receive Date: 20040121
  Receipt Date: 20030902
  Transmission Date: 20041129
  Serious: No
  Sender: FDA-Public Use
  Company Number: US-GLAXOSMITHKLINE-A0424318A

PATIENT
  Age: 45 Year
  Sex: Female

DRUGS (1)
  1. VALTREX [Suspect]
     Dosage: 500MG UNKNOWN
     Route: 048
     Dates: end: 20030901

REACTIONS (3)
  - EYELID OEDEMA [None]
  - RASH ERYTHEMATOUS [None]
  - SWELLING FACE [None]
